FAERS Safety Report 10204751 (Version 1)
Quarter: 2014Q2

REPORT INFORMATION
  Report Type: Spontaneous
  Country: US (occurrence: US)
  Receive Date: 20140529
  Receipt Date: 20140529
  Transmission Date: 20141212
  Serious: No
  Sender: FDA-Public Use
  Company Number: US-PFIZER INC-2014143582

PATIENT
  Age: 62 Year
  Sex: Female

DRUGS (3)
  1. TOVIAZ [Suspect]
     Dosage: 4 MG, UNK
  2. TOVIAZ [Suspect]
     Dosage: 8 MG, UNK
  3. TOVIAZ [Suspect]
     Dosage: 4 MG, UNK

REACTIONS (2)
  - Drug ineffective [Unknown]
  - Dry mouth [Unknown]
